FAERS Safety Report 4291806-0 (Version None)
Quarter: 2004Q1

REPORT INFORMATION
  Report Type: 
  Country: None (occurrence: None)
  Receive Date: 20040211
  Receipt Date: 20030520
  Transmission Date: 20041129
  Serious: No
  Sender: FDA-Public Use
  Company Number: US-GLAXOSMITHKLINE-A0409004A

PATIENT
  Age: 57 Year
  Sex: Female

DRUGS (4)
  1. IMITREX [Suspect]
     Indication: MIGRAINE
     Dosage: 6MG UNKNOWN
     Route: 058
  2. MORPHINE [Concomitant]
     Route: 065
  3. STADOL [Concomitant]
  4. BOTOX [Concomitant]
     Indication: MIGRAINE
     Route: 042

REACTIONS (1)
  - DRUG INEFFECTIVE [None]
